FAERS Safety Report 8771771 (Version 1)
Quarter: 2012Q4

REPORT INFORMATION
  Report Type: 
  Country: US (occurrence: US)
  Receive Date: 20120906
  Receipt Date: 20120906
  Transmission Date: 20130627
  Serious: No
  Sender: FDA-Public Use
  Company Number: US-009507513-1209USA002183

PATIENT

DRUGS (2)
  1. DR. SCHOLL^S ULTRA THIN CORN REMOVER [Suspect]
     Indication: PRODUCT USED FOR UNKNOWN INDICATION
     Dosage: UNK, Unknown
     Route: 061
  2. DR. SCHOLL^S ULTRA THIN CORN REMOVER [Suspect]
     Dosage: UNK

REACTIONS (1)
  - Therapeutic product ineffective [Unknown]
